FAERS Safety Report 8841201 (Version 1)
Quarter: 2012Q4

REPORT INFORMATION
  Report Type: 
  Country: US (occurrence: US)
  Receive Date: 20121015
  Receipt Date: 20121015
  Transmission Date: 20130627
  Serious: Yes (Hospitalization)
  Sender: FDA-Public Use
  Company Number: US-ROCHE-1143703

PATIENT
  Sex: Female

DRUGS (4)
  1. CELLCEPT [Suspect]
     Indication: MYOPATHY
     Route: 048
     Dates: start: 2010
  2. CELLCEPT [Suspect]
     Route: 048
     Dates: start: 2012, end: 201206
  3. PREDNISONE [Concomitant]
  4. WARFARIN [Concomitant]

REACTIONS (6)
  - Exostosis [Unknown]
  - Thrombosis [Unknown]
  - Asthenia [Recovered/Resolved]
  - Balance disorder [Recovered/Resolved]
  - Fall [Unknown]
  - Spinal column stenosis [Unknown]
